FAERS Safety Report 5317464-1 (Version None)
Quarter: 2007Q2

REPORT INFORMATION
  Report Type: 
  Country: None (occurrence: None)
  Receive Date: 20070507
  Receipt Date: 20070424
  Transmission Date: 20071010
  Serious: Yes (Hospitalization)
  Sender: FDA-Public Use
  Company Number: PHHO2006JP22019

PATIENT
  Age: 63 Year
  Sex: Male
  Weight: 56 kg

DRUGS (8)
  1. VALSARTAN AND HYDROCHLOROTHIAZIDE [Suspect]
     Indication: HYPERTENSION
     Dosage: 40 MG/6.25 MG
     Route: 048
     Dates: start: 20060718, end: 20061226
  2. PREDNISOLONE [Suspect]
     Dosage: 50 MG, QD
     Route: 048
     Dates: start: 20070102, end: 20070112
  3. PREDNISOLONE [Suspect]
     Dosage: 40 MG, QD
     Route: 048
     Dates: start: 20070112, end: 20070123
  4. PREDNISOLONE [Suspect]
     Dosage: 30 MG, QD
     Route: 048
     Dates: start: 20070123, end: 20070205
  5. PREDNISOLONE [Suspect]
     Dosage: 25 MG, QD
     Route: 048
     Dates: start: 20070205, end: 20070226
  6. PREDNISOLONE [Suspect]
     Dosage: 15 MG, QD
     Route: 048
     Dates: start: 20070326, end: 20070424
  7. PREDNISOLONE [Suspect]
     Dosage: 10 MG, QD
     Route: 048
     Dates: start: 20070424
  8. PREDNISOLONE [Suspect]
     Dosage: 20 MG, QD
     Route: 048
     Dates: start: 20070226, end: 20070326

REACTIONS (11)
  - CHOROIDAL DETACHMENT [None]
  - CSF CELL COUNT ABNORMAL [None]
  - CSF PROTEIN INCREASED [None]
  - DIABETES MELLITUS [None]
  - GAMMA-GLUTAMYLTRANSFERASE INCREASED [None]
  - HEPATIC FUNCTION ABNORMAL [None]
  - HYPERCHOLESTEROLAEMIA [None]
  - OCULAR DISCOMFORT [None]
  - OPTIC NERVE DISORDER [None]
  - RETINAL DETACHMENT [None]
  - VOGT-KOYANAGI-HARADA SYNDROME [None]
